FAERS Safety Report 9572657 (Version 1)
Quarter: 2013Q4

REPORT INFORMATION
  Report Type: Report from Study
  Country: US (occurrence: US)
  Receive Date: 20131001
  Receipt Date: 20131001
  Transmission Date: 20140711
  Serious: Yes (Other)
  Sender: FDA-Public Use
  Company Number: US-US-EMD SERONO, INC.-7239727

PATIENT
  Sex: Female

DRUGS (1)
  1. REBIF [Suspect]
     Indication: MULTIPLE SCLEROSIS
     Route: 058
     Dates: start: 20040102

REACTIONS (7)
  - Injection site pain [Not Recovered/Not Resolved]
  - Chronic lymphocytic leukaemia [Unknown]
  - Atrial fibrillation [Unknown]
  - Memory impairment [Not Recovered/Not Resolved]
  - Fall [Unknown]
  - Influenza [Unknown]
  - Injection site cellulitis [Recovered/Resolved]
